FAERS Safety Report 5215633-2 (Version None)
Quarter: 2007Q1

REPORT INFORMATION
  Report Type: 
  Country: None (occurrence: None)
  Receive Date: 20070123
  Receipt Date: 20070112
  Transmission Date: 20070707
  Serious: Yes (Death)
  Sender: FDA-Public Use
  Company Number: PHBS2007ES00995

PATIENT
  Age: 25 Year
  Sex: Male

DRUGS (6)
  1. CYCLOSPORINE [Suspect]
     Indication: CORD BLOOD TRANSPLANT THERAPY
     Route: 065
  2. PREDNISONE [Suspect]
     Indication: CORD BLOOD TRANSPLANT THERAPY
     Route: 065
  3. IRRADIATION [Concomitant]
     Indication: CORD BLOOD TRANSPLANT THERAPY
     Dosage: 1000 CGY IN 5 DOSES
  4. FLUDARABINE [Concomitant]
     Indication: CORD BLOOD TRANSPLANT THERAPY
     Dosage: 30 MG/M2/D
     Route: 065
  5. CYCLOPHOSPHAMIDE [Concomitant]
     Indication: CORD BLOOD TRANSPLANT THERAPY
     Dosage: 60 MG/KG/D
     Route: 065
  6. LYMPHOGLOBULINE [Concomitant]
     Indication: CORD BLOOD TRANSPLANT THERAPY
     Dosage: 30 MG/KG/D
     Route: 065

REACTIONS (6)
  - AMERICAN TRYPANOSOMIASIS [None]
  - ENCEPHALITIS PROTOZOAL [None]
  - MENTAL DISORDER [None]
  - MULTI-ORGAN FAILURE [None]
  - MYOCARDITIS [None]
  - PYREXIA [None]
